FAERS Safety Report 17959768 (Version 1)
Quarter: 2020Q2

REPORT INFORMATION
  Report Type: Other
  Country: CA (occurrence: CA)
  Receive Date: 20200630
  Receipt Date: 20200630
  Transmission Date: 20200714
  Serious: Yes (Other)
  Sender: FDA-Public Use
  Company Number: CA-ACCORD-187034

PATIENT
  Age: 12 Year
  Sex: Female

DRUGS (3)
  1. BLEOMYCIN [Suspect]
     Active Substance: BLEOMYCIN SULFATE
     Indication: OVARIAN DYSGERMINOMA STAGE UNSPECIFIED
     Route: 065
  2. CARBOPLATIN. [Suspect]
     Active Substance: CARBOPLATIN
     Indication: OVARIAN DYSGERMINOMA STAGE UNSPECIFIED
     Route: 042
  3. ETOPOSIDE. [Suspect]
     Active Substance: ETOPOSIDE
     Indication: OVARIAN DYSGERMINOMA STAGE UNSPECIFIED
     Dosage: NOT SPECIFIED
     Route: 065

REACTIONS (4)
  - Nephrocalcinosis [Unknown]
  - Renal failure [Unknown]
  - Herpes zoster [Unknown]
  - Renal tubular necrosis [Unknown]
